FAERS Safety Report 6437561-7 (Version None)
Quarter: 2009Q4

REPORT INFORMATION
  Report Type: 
  Country: None (occurrence: None)
  Receive Date: 20091112
  Receipt Date: 20090521
  Transmission Date: 20100525
  Serious: Yes (Other)
  Sender: FDA-Public Use
  Company Number: US-PFIZER INC-2005048810

PATIENT
  Sex: Female
  Weight: 63 kg

DRUGS (16)
  1. PREMPHASE 14/14 [Suspect]
     Indication: HORMONE REPLACEMENT THERAPY
     Dosage: UNK
     Dates: start: 19970601, end: 19980501
  2. PREMPRO [Suspect]
     Indication: HORMONE REPLACEMENT THERAPY
     Dosage: 0.625/2.5MG
     Route: 065
     Dates: start: 19980901, end: 19990601
  3. PREMPRO [Suspect]
     Dosage: 0.625/5MG
     Route: 065
     Dates: start: 19990601, end: 20011001
  4. ESTRACE [Suspect]
     Indication: HORMONE REPLACEMENT THERAPY
     Dosage: 42.5 MG, UNK
     Route: 065
     Dates: start: 20010301, end: 20010701
  5. ESTRACE [Suspect]
     Dosage: UNK
  6. ESCLIM [Suspect]
     Indication: HORMONE REPLACEMENT THERAPY
     Dosage: 0.275MG
     Dates: start: 20011101, end: 20020201
  7. ESCLIM [Suspect]
     Dosage: 0.0375 MG
     Dates: start: 20020201, end: 20021201
  8. ESCLIM [Suspect]
     Dosage: 0.025MG
     Dates: start: 20020301, end: 20020501
  9. ESCLIM [Suspect]
     Dosage: 0.025MG
     Dates: start: 20030101, end: 20030301
  10. PROMETRIUM [Suspect]
     Indication: HORMONE REPLACEMENT THERAPY
     Dosage: 200 MG, UNK
     Dates: start: 20020301, end: 20020801
  11. PROMETRIUM [Suspect]
     Dosage: 200 MG, UNK
     Dates: start: 20020701, end: 20030301
  12. ADVAIR DISKUS 100/50 [Concomitant]
     Indication: ASTHMA
     Dosage: 100/50MG
     Dates: start: 19980101
  13. FLONASE [Concomitant]
     Indication: ASTHMA
     Dosage: 50 MG, UNK
     Dates: start: 19950101
  14. PROZAC [Concomitant]
     Indication: DEPRESSION
     Dosage: UNK
     Dates: start: 19950101
  15. CLARINEX [Concomitant]
     Indication: HYPERSENSITIVITY
     Dosage: UNK
     Dates: start: 19980101
  16. TRAZODONE [Concomitant]
     Indication: INSOMNIA
     Dosage: UNK
     Dates: start: 19980101

REACTIONS (1)
  - BREAST CANCER FEMALE [None]
